FAERS Safety Report 4382944-2 (Version None)
Quarter: 2004Q2

REPORT INFORMATION
  Report Type: 
  Country: None (occurrence: None)
  Receive Date: 20040617
  Receipt Date: 20040604
  Transmission Date: 20050107
  Serious: Yes (Life-Threatening, Hospitalization)
  Sender: FDA-Public Use
  Company Number: QUIN-243

PATIENT
  Age: 71 Year
  Sex: Male
  Weight: 77.1115 kg

DRUGS (8)
  1. SOLARAZE [Suspect]
     Indication: ACTINIC KERATOSIS
     Dosage: 1 APPLICATION BID TP
     Route: 061
     Dates: start: 20040204, end: 20040401
  2. ASPIRIN [Concomitant]
  3. PEPCID AC [Concomitant]
  4. LIPITOR [Concomitant]
  5. PLAVIX [Concomitant]
  6. AVAPRO [Concomitant]
  7. ZINC [Concomitant]
  8. CALCIUM CITRATE [Concomitant]

REACTIONS (3)
  - DERMATITIS CONTACT [None]
  - DYSPNOEA [None]
  - FATIGUE [None]
